FAERS Safety Report 19952648 (Version 1)
Quarter: 2021Q4

REPORT INFORMATION
  Report Type: Spontaneous
  Country: SA (occurrence: SA)
  Receive Date: 20211014
  Receipt Date: 20211014
  Transmission Date: 20220303
  Serious: Yes (Hospitalization, Other)
  Sender: FDA-Public Use
  Company Number: SA-IPCA LABORATORIES LIMITED-IPC-2021-SA-001750

PATIENT

DRUGS (3)
  1. WARFARIN SODIUM [Suspect]
     Active Substance: WARFARIN SODIUM
     Indication: Lupus endocarditis
     Dosage: UNK
     Route: 065
  2. HYDROXYCHLOROQUINE [Suspect]
     Active Substance: HYDROXYCHLOROQUINE
     Indication: Lupus endocarditis
     Dosage: 400 MILLIGRAM, QD
     Route: 065
  3. ASPIRIN [Suspect]
     Active Substance: ASPIRIN
     Indication: Lupus endocarditis
     Dosage: UNK
     Route: 065

REACTIONS (5)
  - Adverse drug reaction [Recovering/Resolving]
  - Intraocular pressure increased [Recovering/Resolving]
  - Hyphaema [Recovering/Resolving]
  - Vitreous haemorrhage [Recovering/Resolving]
  - Choroidal haemorrhage [Recovering/Resolving]
